FAERS Safety Report 18179806 (Version 1)
Quarter: 2020Q3

REPORT INFORMATION
  Report Type: Spontaneous
  Country: US (occurrence: US)
  Receive Date: 20200820
  Receipt Date: 20200820
  Transmission Date: 20201103
  Serious: No
  Sender: FDA-Public Use
  Company Number: None

PATIENT
  Age: 72 Year
  Sex: Female
  Weight: 99 kg

DRUGS (22)
  1. FIBER [Concomitant]
     Active Substance: PSYLLIUM HUSK
  2. IBUPROFEN. [Concomitant]
     Active Substance: IBUPROFEN
  3. AMLODIPINE [Concomitant]
     Active Substance: AMLODIPINE BESYLATE
  4. ATORVASTATIN [Concomitant]
     Active Substance: ATORVASTATIN
  5. METOPROLOL. [Concomitant]
     Active Substance: METOPROLOL
  6. TRAIMCINOLONE [Concomitant]
  7. TURMERIC [Concomitant]
     Active Substance: HERBALS\TURMERIC
  8. CHELATED MAGNESIUM [Concomitant]
  9. METFORMIN [Concomitant]
     Active Substance: METFORMIN HYDROCHLORIDE
  10. SENNOSIDES. [Concomitant]
     Active Substance: SENNOSIDES
  11. TART CHERRY ADVANCED [Concomitant]
  12. CAPECITABINE. [Suspect]
     Active Substance: CAPECITABINE
     Indication: BREAST CANCER
     Route: 048
     Dates: start: 20200717
  13. ONDANSETRON [Concomitant]
     Active Substance: ONDANSETRON
  14. OXYCODONE [Concomitant]
     Active Substance: OXYCODONE
  15. PROCHLORPERAZINE. [Concomitant]
     Active Substance: PROCHLORPERAZINE
  16. MULTIVITAMIN [Concomitant]
     Active Substance: VITAMINS
  17. POTASSIUM [Concomitant]
     Active Substance: POTASSIUM
  18. BLACK COHOSH [Concomitant]
     Active Substance: BLACK COHOSH
  19. LOPERAMIDE [Concomitant]
     Active Substance: LOPERAMIDE
  20. ELIQUIS [Concomitant]
     Active Substance: APIXABAN
  21. GLIMEPIRIDE. [Concomitant]
     Active Substance: GLIMEPIRIDE
  22. PRALUENT [Concomitant]
     Active Substance: ALIROCUMAB

REACTIONS (1)
  - Arthritis [None]

NARRATIVE: CASE EVENT DATE: 20200820
